FAERS Safety Report 23047011 (Version 1)
Quarter: 2023Q4

REPORT INFORMATION
  Report Type: Spontaneous
  Country: HU (occurrence: HU)
  Receive Date: 20231009
  Receipt Date: 20231009
  Transmission Date: 20240109
  Serious: Yes (Death)
  Sender: FDA-Public Use
  Company Number: HU-PFIZER INC-PV202300164163

PATIENT
  Age: 53 Year
  Sex: Male

DRUGS (4)
  1. AVIBACTAM SODIUM\CEFTAZIDIME [Suspect]
     Active Substance: AVIBACTAM SODIUM\CEFTAZIDIME
     Indication: Stenotrophomonas infection
     Dosage: TIME INTERVAL: 0.33333333 DAYS: 2.5 G, 3X/DAY
     Route: 042
  2. LEVOFLOXACIN [Concomitant]
     Active Substance: LEVOFLOXACIN
     Indication: Stenotrophomonas infection
     Dosage: 2X500 MG
     Route: 042
  3. TIGI [Concomitant]
     Indication: Stenotrophomonas infection
     Dosage: 2X100 MG MAINTENANCE
     Route: 042
  4. TIGI [Concomitant]
     Indication: Stenotrophomonas infection
     Dosage: 200 MG LOADING
     Route: 042

REACTIONS (2)
  - Disease progression [Fatal]
  - Off label use [Fatal]
